FAERS Safety Report 4652674-8 (Version None)
Quarter: 2005Q2

REPORT INFORMATION
  Report Type: 
  Country: None (occurrence: None)
  Receive Date: 20050408
  Receipt Date: 20041228
  Transmission Date: 20051028
  Serious: No
  Sender: FDA-Public Use
  Company Number: 236200K04USA

PATIENT
  Age: 42 Year
  Sex: Female

DRUGS (1)
  1. REBIF [Suspect]
     Indication: MULTIPLE SCLEROSIS
     Dosage: 44 MCG, 3 IN 1 WEEKS, SUBCUTAENOUS
     Route: 058
     Dates: start: 20020514

REACTIONS (10)
  - AMENORRHOEA [None]
  - AUTOIMMUNE THYROIDITIS [None]
  - CHILLS [None]
  - EPISTAXIS [None]
  - LICHEN SCLEROSUS [None]
  - MYALGIA [None]
  - PSORIASIS [None]
  - PYREXIA [None]
  - RAYNAUD'S PHENOMENON [None]
  - SINUSITIS [None]
